FAERS Safety Report 12954813 (Version 1)
Quarter: 2016Q4

REPORT INFORMATION
  Report Type: Spontaneous
  Country: US (occurrence: US)
  Receive Date: 20161118
  Receipt Date: 20161118
  Transmission Date: 20170207
  Serious: Yes (Death)
  Sender: FDA-Public Use
  Company Number: None

PATIENT
  Age: 82 Year
  Sex: Female
  Weight: 83.92 kg

DRUGS (1)
  1. AMIODARONE 20 MG [Suspect]
     Active Substance: AMIODARONE
     Dosage: AMIODARONE - DATES OF USE - YEARS UP TO DEATH
     Route: 048

REACTIONS (2)
  - Toxicity to various agents [None]
  - Respiratory failure [None]

NARRATIVE: CASE EVENT DATE: 20121105
